FAERS Safety Report 11519101 (Version 5)
Quarter: 2016Q4

REPORT INFORMATION
  Report Type: Report from Study
  Country: JP (occurrence: JP)
  Receive Date: 20150917
  Receipt Date: 20161212
  Transmission Date: 20170206
  Serious: Yes (Death, Life-Threatening, Other)
  Sender: FDA-Public Use
  Company Number: JP-009507513-1508JPN012472

PATIENT
  Age: 66 Year
  Sex: Male
  Weight: 57 kg

DRUGS (12)
  1. PREDONINE [Concomitant]
     Active Substance: PREDNISOLONE\PREDNISOLONE ACETATE\PREDNISOLONE SODIUM SUCCINATE
     Dosage: 50 MG, QD
     Route: 051
     Dates: start: 20150726, end: 20150824
  2. CUBICIN [Suspect]
     Active Substance: DAPTOMYCIN
     Indication: SEPSIS
     Dosage: 6 MG/KG, 1/1 DAY
     Route: 041
     Dates: start: 20150808, end: 20150812
  3. CLINDAMYCIN PHOSPHATE. [Concomitant]
     Active Substance: CLINDAMYCIN PHOSPHATE
     Indication: SEPSIS
     Dosage: 1800 MG, UNK
     Route: 041
     Dates: start: 20150805, end: 20150806
  4. MEROPEN [Concomitant]
     Active Substance: MEROPENEM
     Indication: SEPSIS
     Dosage: 1 G, TID
     Route: 051
     Dates: start: 20150810, end: 20150813
  5. MAINTATE [Concomitant]
     Active Substance: BISOPROLOL FUMARATE
     Route: 048
     Dates: start: 20150811, end: 20150824
  6. PRECEDEX [Concomitant]
     Active Substance: DEXMEDETOMIDINE HYDROCHLORIDE
     Dosage: 800 MICROGRAM, QD
     Route: 051
     Dates: start: 20150725
  7. FLUCONAZOLE. [Concomitant]
     Active Substance: FLUCONAZOLE
     Dosage: 200 MG, QD
     Route: 048
     Dates: start: 20140926, end: 20150824
  8. FENTANYL. [Concomitant]
     Active Substance: FENTANYL
     Dosage: 3 MG, QD
     Route: 051
     Dates: start: 20150726
  9. PLATELETS [Concomitant]
     Active Substance: HUMAN PLATELET, ALLOGENIC
     Dosage: 10 IU, QD
     Route: 051
     Dates: start: 20150725, end: 20150824
  10. ONOACT [Concomitant]
     Active Substance: LANDIOLOL HYDROCHLORIDE
     Dosage: 100 MG, QD
     Route: 051
     Dates: start: 20150805, end: 20150814
  11. HUMULIN R [Concomitant]
     Active Substance: INSULIN HUMAN
     Dosage: 72 IU QD
     Route: 051
     Dates: start: 20150729
  12. BLOOD CELLS, RED [Concomitant]
     Active Substance: HUMAN BLOOD CELLS
     Dosage: 4 (UNER1000UNIT), QD
     Route: 051
     Dates: start: 20150809, end: 20150809

REACTIONS (10)
  - Sepsis [Fatal]
  - Gastrointestinal perforation [Fatal]
  - Intestinal perforation [Fatal]
  - Toxic epidermal necrolysis [Fatal]
  - Sepsis [Fatal]
  - Drug ineffective [Unknown]
  - Hepatic function abnormal [Recovering/Resolving]
  - Blood creatine phosphokinase increased [Not Recovered/Not Resolved]
  - Sepsis [Fatal]
  - Cerebral haemorrhage [Fatal]

NARRATIVE: CASE EVENT DATE: 20150810
